FAERS Safety Report 5828436-2 (Version None)
Quarter: 2008Q3

REPORT INFORMATION
  Report Type: 
  Country: None (occurrence: None)
  Receive Date: 20080731
  Receipt Date: 20080722
  Transmission Date: 20090109
  Serious: Yes (Other)
  Sender: FDA-Public Use
  Company Number: US-ROCHE-510120

PATIENT
  Sex: Male

DRUGS (6)
  1. PEGASYS [Suspect]
     Dosage: FORM: PREFILLED SYRINGE
     Route: 065
     Dates: start: 20070617, end: 20080511
  2. COPEGUS [Suspect]
     Route: 065
     Dates: start: 20070617
  3. COPEGUS [Suspect]
     Route: 065
  4. COPEGUS [Suspect]
     Route: 065
  5. COPEGUS [Suspect]
     Route: 065
  6. COPEGUS [Suspect]
     Dosage: THE PATIENT WAS SWITCHED TO RIBAVIRIN (MANUFACTURER: UNKNOWN)
     Route: 065
     Dates: end: 20080511

REACTIONS (20)
  - ANGINA PECTORIS [None]
  - ARTHRALGIA [None]
  - BACK PAIN [None]
  - BLOOD TRIGLYCERIDES INCREASED [None]
  - DEPRESSION [None]
  - DYSPNOEA [None]
  - ERECTILE DYSFUNCTION [None]
  - FATIGUE [None]
  - GRAND MAL CONVULSION [None]
  - HAEMOLYTIC ANAEMIA [None]
  - INSOMNIA [None]
  - INTERVERTEBRAL DISC PROTRUSION [None]
  - IRRITABILITY [None]
  - MUSCLE ATROPHY [None]
  - MYALGIA [None]
  - NAUSEA [None]
  - NERVOUSNESS [None]
  - PRURITUS [None]
  - VIRAL LOAD INCREASED [None]
  - WEIGHT INCREASED [None]
